FAERS Safety Report 25713381 (Version 1)
Quarter: 2025Q3

REPORT INFORMATION
  Report Type: Spontaneous
  Country: US (occurrence: US)
  Receive Date: 20250822
  Receipt Date: 20250822
  Transmission Date: 20251021
  Serious: No
  Sender: SANOFI AVENTIS
  Company Number: US-SA-2025SA249417

PATIENT
  Sex: Female

DRUGS (1)
  1. CERDELGA [Suspect]
     Active Substance: ELIGLUSTAT
     Indication: Gaucher^s disease
     Dosage: 2 CAPSULES (168 MG TOTAL) BY MOUTH EVERY MORNING AND 1 CAPSULE (84 MG TOTAL) EVERY EVENING
     Route: 048
     Dates: start: 201908

REACTIONS (1)
  - Incorrect dose administered [Unknown]
